FAERS Safety Report 4933366-4 (Version None)
Quarter: 2006Q1

REPORT INFORMATION
  Report Type: 
  Country: None (occurrence: None)
  Receive Date: 20060306
  Receipt Date: 20050512
  Transmission Date: 20060701
  Serious: Yes (Hospitalization)
  Sender: FDA-Public Use
  Company Number: US-MERCK-0505USA01692

PATIENT
  Age: 39 Year
  Sex: Female
  Weight: 100 kg

DRUGS (11)
  1. VIOXX [Suspect]
     Indication: OSTEOARTHRITIS
     Route: 048
     Dates: start: 20000314
  2. VIOXX [Suspect]
     Route: 048
     Dates: start: 20000906, end: 20001201
  3. MAXAIR [Concomitant]
     Route: 055
  4. ESTRADIOL [Concomitant]
     Route: 065
  5. PROPULSID [Concomitant]
     Route: 065
  6. COMBIVENT [Concomitant]
     Route: 065
  7. LOTRISONE [Concomitant]
     Route: 061
  8. ZOLOFT [Concomitant]
     Route: 065
  9. LEVOXYL [Concomitant]
     Route: 065
  10. PRILOSEC [Concomitant]
     Route: 048
  11. CLARITIN [Concomitant]
     Route: 065

REACTIONS (7)
  - ACUTE MYOCARDIAL INFARCTION [None]
  - BLOOD CHOLESTEROL INCREASED [None]
  - CARPAL TUNNEL SYNDROME [None]
  - CORONARY ARTERY DISEASE [None]
  - HEADACHE [None]
  - INSOMNIA [None]
  - MENOPAUSE [None]
